FAERS Safety Report 22702693 (Version 2)
Quarter: 2023Q4

REPORT INFORMATION
  Report Type: Spontaneous
  Country: US (occurrence: US)
  Receive Date: 20230713
  Receipt Date: 20231123
  Transmission Date: 20240109
  Serious: Yes (Hospitalization, Other)
  Sender: FDA-Public Use
  Company Number: US-PFIZER INC-PV202300120767

PATIENT
  Age: 71 Year
  Sex: Female

DRUGS (2)
  1. PRISTIQ EXTENDED-RELEASE [Suspect]
     Active Substance: DESVENLAFAXINE SUCCINATE
     Indication: Antidepressant therapy
     Dosage: UNK
     Dates: end: 20231027
  2. PRISTIQ EXTENDED-RELEASE [Suspect]
     Active Substance: DESVENLAFAXINE SUCCINATE
     Indication: Euthanasia

REACTIONS (22)
  - Aneurysm [Unknown]
  - Cerebrovascular accident [Unknown]
  - Exophthalmos [Unknown]
  - Congenital musculoskeletal disorder of spine [Unknown]
  - Therapeutic response unexpected [Unknown]
  - Withdrawal syndrome [Unknown]
  - Migraine [Unknown]
  - Chest pain [Unknown]
  - Dysgeusia [Unknown]
  - Blood cholesterol increased [Unknown]
  - Intervertebral disc protrusion [Unknown]
  - Pain [Unknown]
  - Nausea [Unknown]
  - Dizziness [Unknown]
  - Insomnia [Unknown]
  - Hyperhidrosis [Unknown]
  - Constipation [Unknown]
  - Somnolence [Unknown]
  - Decreased appetite [Unknown]
  - Lung disorder [Unknown]
  - Illness [Unknown]
  - Lacrimal disorder [Unknown]

NARRATIVE: CASE EVENT DATE: 20231027
